FAERS Safety Report 8581399-1 (Version None)
Quarter: 2012Q3

REPORT INFORMATION
  Report Type: 
  Country: None (occurrence: None)
  Receive Date: 20120809
  Receipt Date: 20120801
  Transmission Date: 20120928
  Serious: Yes (Other)
  Sender: FDA-Public Use
  Company Number: US-US-EMD SERONO, INC.-7104627

PATIENT
  Sex: Male

DRUGS (3)
  1. REBIF [Suspect]
     Indication: MULTIPLE SCLEROSIS
     Route: 058
     Dates: start: 20110816, end: 20120207
  2. REBIF [Suspect]
     Dates: start: 20120101
  3. KLONOPIN [Concomitant]
     Indication: PRODUCT USED FOR UNKNOWN INDICATION

REACTIONS (8)
  - MUSCLE RUPTURE [None]
  - VITAMIN D DECREASED [None]
  - RASH [None]
  - NERVE COMPRESSION [None]
  - EYE DISORDER [None]
  - FALL [None]
  - TREMOR [None]
  - INJECTION SITE PAIN [None]
